FAERS Safety Report 9054924 (Version 1)
Quarter: 2013Q1

REPORT INFORMATION
  Report Type: Spontaneous
  Country: ES (occurrence: ES)
  Receive Date: 20130208
  Receipt Date: 20130208
  Transmission Date: 20140127
  Serious: Yes (Hospitalization, Other)
  Sender: FDA-Public Use
  Company Number: ES-JNJFOC-20130202911

PATIENT
  Age: 81 Year
  Sex: Male

DRUGS (7)
  1. XARELTO [Suspect]
     Indication: PRODUCT USED FOR UNKNOWN INDICATION
     Route: 048
     Dates: start: 201210, end: 201301
  2. OMEPRAZOLE [Concomitant]
     Route: 065
  3. LYRICA [Concomitant]
     Route: 065
  4. SEGURIL [Concomitant]
     Route: 065
  5. DULOXETINE [Concomitant]
     Route: 065
  6. DEPRAX [Concomitant]
     Route: 065
  7. MINITRAN 10 [Concomitant]
     Route: 065

REACTIONS (2)
  - Transient ischaemic attack [Unknown]
  - Palpable purpura [Recovering/Resolving]
